FAERS Safety Report 23759366 (Version 1)
Quarter: 2024Q2

REPORT INFORMATION
  Report Type: Spontaneous
  Country: US (occurrence: None)
  Receive Date: 20240418
  Receipt Date: 20240418
  Transmission Date: 20240716
  Serious: No
  Sender: FDA-Public Use
  Company Number: US-ROCHE-3471077

PATIENT
  Age: 80 Year
  Sex: Male

DRUGS (10)
  1. ESBRIET [Suspect]
     Active Substance: PIRFENIDONE
     Indication: Pulmonary fibrosis
     Dosage: PATIENT TAKES 1 TABLET 3 TIMES A DAY FOR 7 DAYS, FOLLOWED BY 2 TABLET 3 TIMES A DAY FOR 7 DAYS AND 3
     Route: 048
     Dates: start: 202311
  2. OFEV [Suspect]
     Active Substance: NINTEDANIB
     Indication: Idiopathic pulmonary fibrosis
     Dosage: 100 MG  (1 IN 12 HRS)
     Route: 048
     Dates: start: 20220609, end: 20220622
  3. OFEV [Suspect]
     Active Substance: NINTEDANIB
     Dosage: 100 MG  (1 IN 12 HRS)
     Route: 048
     Dates: start: 20220806, end: 20230126
  4. OFEV [Suspect]
     Active Substance: NINTEDANIB
     Route: 048
     Dates: start: 202301, end: 202302
  5. OFEV [Suspect]
     Active Substance: NINTEDANIB
     Dosage: 100 MG  (1 IN 12 HRS)
     Route: 048
     Dates: start: 20230212, end: 20230323
  6. OFEV [Suspect]
     Active Substance: NINTEDANIB
     Dosage: 150 MG  (1 IN 12 HRS)
     Route: 048
     Dates: start: 20230512, end: 20230925
  7. OFEV [Suspect]
     Active Substance: NINTEDANIB
     Dosage: 100 MG  (1 IN 12 HRS)
     Route: 048
     Dates: start: 20230524
  8. OFEV [Suspect]
     Active Substance: NINTEDANIB
     Dosage: 100 MG  (1 IN 1 DAY)
     Route: 048
     Dates: start: 20230601, end: 20230812
  9. OFEV [Suspect]
     Active Substance: NINTEDANIB
     Route: 048
     Dates: start: 20230923, end: 20230925
  10. TYVASO DPI [Concomitant]
     Active Substance: TREPROSTINIL

REACTIONS (20)
  - Haemorrhoids [Not Recovered/Not Resolved]
  - Rectal haemorrhage [Recovered/Resolved]
  - Haemorrhoidal haemorrhage [Not Recovered/Not Resolved]
  - Flatulence [Not Recovered/Not Resolved]
  - Anaemia [Unknown]
  - Photopsia [Not Recovered/Not Resolved]
  - Feeling hot [Not Recovered/Not Resolved]
  - Muscle twitching [Not Recovered/Not Resolved]
  - Tremor [Not Recovered/Not Resolved]
  - Fatigue [Not Recovered/Not Resolved]
  - Asthenia [Not Recovered/Not Resolved]
  - Bradypnoea [Not Recovered/Not Resolved]
  - Abdominal discomfort [Unknown]
  - Nausea [Unknown]
  - Vomiting [Unknown]
  - Abdominal pain upper [Recovered/Resolved]
  - Peripheral swelling [Not Recovered/Not Resolved]
  - White blood cell count abnormal [Unknown]
  - Hepatic pain [Unknown]
  - Diarrhoea [Not Recovered/Not Resolved]

NARRATIVE: CASE EVENT DATE: 20231114
